FAERS Safety Report 6576615-1 (Version None)
Quarter: 2010Q1

REPORT INFORMATION
  Report Type: 
  Country: None (occurrence: None)
  Receive Date: 20100210
  Receipt Date: 20100204
  Transmission Date: 20100710
  Serious: Yes (Death, Life-Threatening)
  Sender: FDA-Public Use
  Company Number: JP-BRISTOL-MYERS SQUIBB COMPANY-14490973

PATIENT
  Age: 75 Year
  Sex: Male
  Weight: 56 kg

DRUGS (13)
  1. ERBITUX [Suspect]
     Indication: COLON CANCER
     Route: 042
     Dates: start: 20090109, end: 20090109
  2. IRINOTECAN HCL [Suspect]
     Indication: COLON CANCER
     Route: 042
     Dates: start: 20090109, end: 20090109
  3. POLARAMINE [Concomitant]
     Indication: PREMEDICATION
     Dosage: 0.7143MG
     Route: 042
     Dates: start: 20090109, end: 20090109
  4. DECADRON [Concomitant]
     Indication: PREMEDICATION
     Route: 042
     Dates: start: 20090109, end: 20090109
  5. KYTRIL [Concomitant]
     Indication: ANTIEMETIC SUPPORTIVE CARE
     Route: 042
     Dates: start: 20090109, end: 20090111
  6. SIGMART [Concomitant]
     Indication: ANGINA PECTORIS
     Dosage: TABS
     Route: 048
     Dates: end: 20090113
  7. NAUZELIN [Concomitant]
     Indication: NAUSEA
     Route: 048
     Dates: end: 20090113
  8. TAGAMET [Concomitant]
     Indication: GASTRIC ULCER
     Dosage: TABS
     Route: 048
     Dates: end: 20090113
  9. ITOROL [Concomitant]
     Indication: HYPERURICAEMIA
     Dosage: TABS
     Route: 048
     Dates: end: 20090113
  10. MOBIC [Concomitant]
     Indication: CANCER PAIN
     Route: 048
     Dates: end: 20090113
  11. AMLODIPINE [Concomitant]
     Indication: HYPERTENSION
     Route: 048
     Dates: end: 20090113
  12. DUROTEP [Concomitant]
     Indication: CANCER PAIN
     Dosage: TRANSDERMAL PATCH
     Route: 058
     Dates: start: 20081128, end: 20090201
  13. HERBAL MIXTURE [Concomitant]

REACTIONS (2)
  - ILEUS [None]
  - WHITE BLOOD CELL COUNT DECREASED [None]
